FAERS Safety Report 7042184-5 (Version None)
Quarter: 2010Q4

REPORT INFORMATION
  Report Type: 
  Country: None (occurrence: None)
  Receive Date: 20101013
  Receipt Date: 20100706
  Transmission Date: 20110411
  Serious: No
  Sender: FDA-Public Use
  Company Number: US-ASTRAZENECA-2010SE31436

PATIENT
  Age: 63 Year
  Sex: Male

DRUGS (4)
  1. SYMBICORT [Suspect]
     Indication: CHRONIC OBSTRUCTIVE PULMONARY DISEASE
     Dosage: 80/4.5, TWO PUFFS, TWO TIMES A DAY.
     Route: 055
  2. CARDIA XT [Concomitant]
  3. HYDROCHLOROTHIAZIDE [Concomitant]
  4. AVELOX [Concomitant]

REACTIONS (2)
  - COUGH [None]
  - PNEUMONIA [None]
